FAERS Safety Report 8554358-2 (Version None)
Quarter: 2012Q3

REPORT INFORMATION
  Report Type: 
  Country: None (occurrence: None)
  Receive Date: 20120731
  Receipt Date: 20120716
  Transmission Date: 20120928
  Serious: No
  Sender: FDA-Public Use
  Company Number: US-009507513-1207USA005249

PATIENT

DRUGS (15)
  1. ASPIRIN [Concomitant]
  2. ZIOPTAN [Suspect]
     Indication: GLAUCOMA
     Dosage: 2DROPS, QD
     Route: 047
     Dates: start: 20120627
  3. TORSEMIDE [Concomitant]
  4. LOTREL [Concomitant]
  5. ZAROXOLYN [Concomitant]
  6. VITAMINS (UNSPECIFIED) [Concomitant]
  7. COREG [Concomitant]
  8. TRAMADOL HYDROCHLORIDE [Concomitant]
     Dosage: UNK, PRN
  9. OMEPRAZOLE [Concomitant]
  10. ALPHAGAN P [Concomitant]
     Indication: GLAUCOMA
  11. LIPITOR [Concomitant]
  12. PROZAC [Concomitant]
  13. GLYBURIDE [Concomitant]
  14. FEOSOL [Concomitant]
  15. CATAPRES [Concomitant]

REACTIONS (3)
  - BLOOD GLUCOSE INCREASED [None]
  - PRURITUS [None]
  - EYE PRURITUS [None]
